FAERS Safety Report 22185086 (Version 3)
Quarter: 2023Q2

REPORT INFORMATION
  Report Type: Report from Study
  Country: NL (occurrence: NL)
  Receive Date: 20230407
  Receipt Date: 20230509
  Transmission Date: 20230721
  Serious: Yes (Hospitalization, Other)
  Sender: FDA-Public Use
  Company Number: NL-KOREA IPSEN Pharma-2023-03113

PATIENT
  Age: 82 Year
  Sex: Male
  Weight: 80 kg

DRUGS (6)
  1. LANREOTIDE ACETATE [Suspect]
     Active Substance: LANREOTIDE ACETATE
     Indication: Hepatic cyst
     Dosage: 1.00 X PER 4 WEEK
     Route: 058
  2. APIXABAN [Concomitant]
     Active Substance: APIXABAN
     Dosage: 2,5 MG X 2 1 1
  3. TELMISARTAN [Concomitant]
     Active Substance: TELMISARTAN
     Dosage: 20 MG X 1X1
  4. RETINOL [Concomitant]
     Active Substance: RETINOL
     Dosage: 0,25 MG X 1X1
  5. ERGOCALCIFEROL [Concomitant]
     Active Substance: ERGOCALCIFEROL
     Dosage: 0,25 MG X 1X1
  6. SOTALOL [Concomitant]
     Active Substance: SOTALOL

REACTIONS (3)
  - Cardiac pacemaker insertion [Recovered/Resolved]
  - Arrhythmia [Recovered/Resolved]
  - Off label use [Unknown]

NARRATIVE: CASE EVENT DATE: 20230128
